FAERS Safety Report 9028995 (Version 1)
Quarter: 2013Q1

REPORT INFORMATION
  Report Type: Spontaneous
  Country: IN (occurrence: IN)
  Receive Date: 20130123
  Receipt Date: 20130123
  Transmission Date: 20140127
  Serious: Yes (Death, Other)
  Sender: FDA-Public Use
  Company Number: PHHY2013IN005910

PATIENT
  Age: 33 Year
  Sex: Male

DRUGS (1)
  1. ASUNRA [Suspect]
     Indication: THALASSAEMIA
     Dosage: 400 MG X 3
     Route: 048
     Dates: start: 20120602, end: 20130109

REACTIONS (2)
  - Death [Fatal]
  - General physical condition abnormal [Unknown]
